FAERS Safety Report 20430037 (Version 1)
Quarter: 2022Q1

REPORT INFORMATION
  Report Type: Report from Study
  Country: FR (occurrence: FR)
  Receive Date: 20220204
  Receipt Date: 20220204
  Transmission Date: 20220423
  Serious: Yes (Hospitalization)
  Sender: FDA-Public Use
  Company Number: FR-SERVIER-S19005757

PATIENT

DRUGS (10)
  1. ONCASPAR [Suspect]
     Active Substance: PEGASPARGASE
     Indication: Acute lymphocytic leukaemia
     Dosage: 2550 IU, ON D15, D43
     Route: 042
     Dates: start: 20190208, end: 20190308
  2. CYCLOPHOSPHAMIDE [Suspect]
     Active Substance: CYCLOPHOSPHAMIDE
     Indication: Acute lymphocytic leukaemia
     Dosage: 1000 MG, ON D1, D29
     Route: 042
     Dates: start: 20190125, end: 20190222
  3. CYTARABINE [Suspect]
     Active Substance: CYTARABINE
     Indication: Acute lymphocytic leukaemia
     Dosage: 30 MG, ON D3, D31
     Route: 037
     Dates: start: 20190128, end: 20190225
  4. CYTARABINE [Suspect]
     Active Substance: CYTARABINE
     Dosage: 75 MG, QD FROM D3 TO D6, FROM D10 TO D13, FROM D31 TO D34, FROM D38 TO D41
     Route: 042
     Dates: start: 20190128, end: 20190307
  5. HYDROCORTISONE [Suspect]
     Active Substance: HYDROCORTISONE
     Indication: Acute lymphocytic leukaemia
     Dosage: 15 MG, ON D3, D31
     Route: 037
     Dates: start: 20190128, end: 20190225
  6. METHOTREXATE [Suspect]
     Active Substance: METHOTREXATE
     Indication: Acute lymphocytic leukaemia
     Dosage: 15 MG, ON D3, D31
     Route: 037
     Dates: start: 20190128, end: 20190225
  7. VINCRISTINE [Suspect]
     Active Substance: VINCRISTINE
     Indication: Acute lymphocytic leukaemia
     Dosage: 1.5 MG, ON D15, D22, D43, D50
     Route: 042
     Dates: start: 20190208, end: 20190315
  8. MERCAPTOPURINE [Suspect]
     Active Substance: MERCAPTOPURINE
     Indication: Acute lymphocytic leukaemia
     Dosage: 75 MG QD FROM D3 TO D14 AND FROM D29 TO D42
     Route: 048
     Dates: start: 20190125, end: 20190307
  9. MERCAPTOPURINE [Suspect]
     Active Substance: MERCAPTOPURINE
     Dosage: 50 MG QD FROM D3 TO D14 AND FROM D29 TO D42
     Route: 048
     Dates: start: 20190125, end: 20190307
  10. BACTRIM [Concomitant]
     Active Substance: SULFAMETHOXAZOLE\TRIMETHOPRIM
     Indication: Infection prophylaxis
     Dosage: 700 MG/48H
     Route: 048
     Dates: start: 20190125

REACTIONS (2)
  - Diplopia [Recovered/Resolved]
  - Eyelid ptosis [Recovered/Resolved]

NARRATIVE: CASE EVENT DATE: 20190326
